FAERS Safety Report 10419650 (Version 3)
Quarter: 2014Q4

REPORT INFORMATION
  Report Type: Spontaneous
  Country: US (occurrence: US)
  Receive Date: 20140829
  Receipt Date: 20141114
  Transmission Date: 20150528
  Serious: Yes (Other)
  Sender: FDA-Public Use
  Company Number: US-PFIZER INC-2014238319

PATIENT
  Age: 62 Year
  Sex: Female

DRUGS (3)
  1. LIPITOR [Suspect]
     Active Substance: ATORVASTATIN CALCIUM
     Indication: CARDIAC DISORDER
  2. LIPITOR [Suspect]
     Active Substance: ATORVASTATIN CALCIUM
     Indication: LOW DENSITY LIPOPROTEIN INCREASED
     Dosage: UNK, AS DIRECTED
     Route: 048
     Dates: start: 200410, end: 200508
  3. LIPITOR [Suspect]
     Active Substance: ATORVASTATIN CALCIUM
     Indication: CARDIOVASCULAR EVENT PROPHYLAXIS

REACTIONS (2)
  - Myalgia [Not Recovered/Not Resolved]
  - Type 2 diabetes mellitus [Unknown]

NARRATIVE: CASE EVENT DATE: 200410
